FAERS Safety Report 5841215-5 (Version None)
Quarter: 2008Q3

REPORT INFORMATION
  Report Type: 
  Country: None (occurrence: None)
  Receive Date: 20080731
  Receipt Date: 20080613
  Transmission Date: 20090109
  Serious: No
  Sender: FDA-Public Use
  Company Number: US200806003424

PATIENT
  Age: 50 Year
  Sex: Female

DRUGS (13)
  1. BYETTA [Suspect]
     Indication: INSULIN-REQUIRING TYPE 2 DIABETES MELLITUS
     Dosage: 5 UG, 2/D, SUBCUTANEOUS
     Route: 058
     Dates: start: 20080604
  2. HUMALOG [Concomitant]
  3. LANTUS [Concomitant]
  4. DRUG USED IN DIABETES [Concomitant]
  5. LEVOTHROID [Concomitant]
  6. CRESTOR [Concomitant]
  7. BENICAR [Concomitant]
  8. DEPAKOTE ER [Concomitant]
  9. ABILIFY [Concomitant]
  10. SEROQUEL [Concomitant]
  11. SONATA [Concomitant]
  12. TYLENOL W/ CODEINE [Concomitant]
  13. FLEXERIL [Concomitant]

REACTIONS (6)
  - AGITATION [None]
  - ANOREXIA [None]
  - BLOOD GLUCOSE INCREASED [None]
  - CONFUSIONAL STATE [None]
  - DISORIENTATION [None]
  - SOMNOLENCE [None]
